FAERS Safety Report 6870971-2 (Version None)
Quarter: 2010Q3

REPORT INFORMATION
  Report Type: 
  Country: None (occurrence: None)
  Receive Date: 20100723
  Receipt Date: 20100716
  Transmission Date: 20110219
  Serious: Yes (Other)
  Sender: FDA-Public Use
  Company Number: HQWYE699511OCT04

PATIENT
  Sex: Female

DRUGS (6)
  1. PREMPRO [Suspect]
     Indication: MENOPAUSE
     Dosage: UNSPECIFIED
     Route: 048
     Dates: start: 19700101, end: 20000101
  2. MEDROXYPROGESTERONE [Suspect]
  3. MEDROXYPROGESTERONE ACETATE [Suspect]
     Indication: MENOPAUSAL SYMPTOMS
     Dosage: NOT PROVIDED
     Route: 065
  4. ESTRADIOL [Suspect]
  5. CONJUGATED ESTROGENS [Suspect]
     Indication: MENOPAUSAL SYMPTOMS
     Dosage: UNSPECIFIED
     Dates: start: 19700101, end: 20000101
  6. PROVERA [Suspect]
     Indication: MENOPAUSAL SYMPTOMS
     Dosage: UNSPECIFIED
     Route: 048
     Dates: start: 19700101, end: 20000101

REACTIONS (1)
  - BREAST CANCER METASTATIC [None]
